FAERS Safety Report 20800574 (Version 1)
Quarter: 2022Q2

REPORT INFORMATION
  Report Type: Other
  Country: CO (occurrence: CO)
  Receive Date: 20220509
  Receipt Date: 20220509
  Transmission Date: 20220720
  Serious: Yes (Other)
  Sender: FDA-Public Use
  Company Number: CO-TOLMAR, INC.-22CO032896

PATIENT
  Age: 81 Year
  Sex: Male

DRUGS (2)
  1. ELIGARD [Suspect]
     Active Substance: LEUPROLIDE ACETATE
     Indication: Prostate cancer
     Dosage: 45 MILLIGRAM, Q 6 MONTH
     Route: 058
     Dates: start: 20200205
  2. ABIRATERONE [Suspect]
     Active Substance: ABIRATERONE
     Indication: Product used for unknown indication
     Dosage: UNK

REACTIONS (3)
  - Diabetes mellitus inadequate control [Unknown]
  - Oral fungal infection [Unknown]
  - Hyperglycaemia [Recovered/Resolved]

NARRATIVE: CASE EVENT DATE: 20211201
